FAERS Safety Report 4579739-3 (Version None)
Quarter: 2005Q1

REPORT INFORMATION
  Report Type: 
  Country: None (occurrence: None)
  Receive Date: 20050210
  Receipt Date: 20050204
  Transmission Date: 20050727
  Serious: Yes (Life-Threatening)
  Sender: FDA-Public Use
  Company Number: 2005AP00987

PATIENT
  Age: 42 Year
  Sex: 0

DRUGS (6)
  1. PROPOFOL [Suspect]
  2. MIDAZOLAM [Suspect]
  3. ATRACURIUM BESYLATE [Suspect]
  4. TEMAZEPAM [Suspect]
  5. FENTANYL [Suspect]
  6. TRAMADOL HYDROCHLORIDE [Suspect]

REACTIONS (3)
  - ANAPHYLACTIC REACTION [None]
  - CAPILLARY DISORDER [None]
  - HYPOXIA [None]
